FAERS Safety Report 17379691 (Version 1)
Quarter: 2020Q1

REPORT INFORMATION
  Report Type: Spontaneous
  Country: US (occurrence: US)
  Receive Date: 20200206
  Receipt Date: 20200206
  Transmission Date: 20200409
  Serious: No
  Sender: FDA-Public Use
  Company Number: US-ABBVIE-19K-163-2695926-00

PATIENT

DRUGS (4)
  1. HUMIRA [Suspect]
     Active Substance: ADALIMUMAB
     Indication: ARTHRITIS BACTERIAL
     Route: 058
     Dates: start: 201608, end: 201701
  2. SIMPONI ARIA [Concomitant]
     Active Substance: GOLIMUMAB
     Indication: ARTHRITIS BACTERIAL
  3. ARAVA [Suspect]
     Active Substance: LEFLUNOMIDE
     Indication: ARTHRITIS BACTERIAL
     Route: 065
     Dates: start: 201605, end: 201809
  4. ENBREL [Suspect]
     Active Substance: ETANERCEPT
     Indication: ARTHRITIS BACTERIAL
     Route: 065
     Dates: start: 201701, end: 201711

REACTIONS (2)
  - Drug ineffective [Unknown]
  - Drug ineffective [Unknown]

NARRATIVE: CASE EVENT DATE: 2017
